FAERS Safety Report 21858283 (Version 2)
Quarter: 2023Q1

REPORT INFORMATION
  Report Type: Spontaneous
  Country: DE (occurrence: DE)
  Receive Date: 20230113
  Receipt Date: 20230216
  Transmission Date: 20230418
  Serious: Yes (Congenital Anomaly, Other)
  Sender: FDA-Public Use
  Company Number: DE-002147023-NVSC2022DE259455

PATIENT
  Sex: Female

DRUGS (4)
  1. TASIGNA [Suspect]
     Active Substance: NILOTINIB
     Indication: Foetal exposure during pregnancy
     Dosage: PATERNAL DOSE: 300 MG, BID (2X 300 MG )
     Route: 050
  2. TASIGNA [Suspect]
     Active Substance: NILOTINIB
     Dosage: PATERNAL DOSE: UNK (2-0-2) DATED 11 OCT 2020
     Route: 050
  3. ZINC [Concomitant]
     Active Substance: ZINC
     Indication: Foetal exposure during pregnancy
     Dosage: PATERNAL DOSE: UNK
     Route: 065
  4. IRON [Concomitant]
     Active Substance: IRON
     Indication: Foetal exposure during pregnancy
     Dosage: PATERNAL DOSE: UNK
     Route: 065

REACTIONS (3)
  - Premature baby [Unknown]
  - Congenital hypothyroidism [Recovering/Resolving]
  - Exposure via father [Unknown]

NARRATIVE: CASE EVENT DATE: 20220101
